FAERS Safety Report 7077209-4 (Version None)
Quarter: 2010Q4

REPORT INFORMATION
  Report Type: 
  Country: None (occurrence: None)
  Receive Date: 20101101
  Receipt Date: 20101025
  Transmission Date: 20110411
  Serious: Yes (Hospitalization)
  Sender: FDA-Public Use
  Company Number: US-ROCHE-736578

PATIENT
  Age: 51 Year
  Sex: Male

DRUGS (3)
  1. BEVACIZUMAB [Suspect]
     Indication: HEAD AND NECK CANCER
     Dosage: LAST PROTOCOL TREATMENT DATE: 25-OCT-2010
     Route: 065
     Dates: start: 20100913
  2. CISPLATIN [Suspect]
     Indication: HEAD AND NECK CANCER
     Dosage: LAST PROTOCOL TREATMENT DATE: 25-OCT-2010
     Route: 065
     Dates: start: 20100913
  3. CETUXIMAB [Suspect]
     Indication: HEAD AND NECK CANCER
     Dosage: LAST PROTOCOL TREATMENT DATE: 25-OCT-2010
     Route: 065
     Dates: start: 20100913

REACTIONS (1)
  - DYSPHAGIA [None]
